FAERS Safety Report 7284066-X (Version None)
Quarter: 2011Q1

REPORT INFORMATION
  Report Type: 
  Country: None (occurrence: None)
  Receive Date: 20110209
  Receipt Date: 20110204
  Transmission Date: 20110831
  Serious: Yes (Hospitalization, Other)
  Sender: FDA-Public Use
  Company Number: DE-ABBOTT-10P-062-0622712-00

PATIENT
  Age: 70 Year
  Sex: Female

DRUGS (4)
  1. MTX [Concomitant]
     Indication: PRODUCT USED FOR UNKNOWN INDICATION
     Dates: start: 19950501, end: 20090801
  2. PANTOPRAZOL [Concomitant]
     Indication: PRODUCT USED FOR UNKNOWN INDICATION
  3. VENLAFAXINE [Concomitant]
     Indication: PRODUCT USED FOR UNKNOWN INDICATION
  4. HUMIRA [Suspect]
     Indication: RHEUMATOID ARTHRITIS
     Dates: start: 20030901

REACTIONS (9)
  - DYSARTHRIA [None]
  - ISCHAEMIC STROKE [None]
  - ATAXIA [None]
  - FACIAL PARESIS [None]
  - COORDINATION ABNORMAL [None]
  - DIZZINESS [None]
  - ISCHAEMIC CEREBRAL INFARCTION [None]
  - GAIT DISTURBANCE [None]
  - DIZZINESS POSTURAL [None]
